FAERS Safety Report 17741147 (Version 3)
Quarter: 2020Q2

REPORT INFORMATION
  Report Type: Report from Study
  Country: US (occurrence: US)
  Receive Date: 20200504
  Receipt Date: 20200630
  Transmission Date: 20200714
  Serious: No
  Sender: FDA-Public Use
  Company Number: NVSC2020US118801

PATIENT
  Sex: Female

DRUGS (1)
  1. PIQRAY [Suspect]
     Active Substance: ALPELISIB
     Indication: PRODUCT USED FOR UNKNOWN INDICATION
     Dosage: UNK
     Route: 048

REACTIONS (10)
  - Inflammation [Unknown]
  - Dyspnoea [Unknown]
  - Paraesthesia [Unknown]
  - Rash erythematous [Unknown]
  - Constipation [Unknown]
  - Chest discomfort [Unknown]
  - Skin discolouration [Unknown]
  - Pleural effusion [Unknown]
  - Diarrhoea [Unknown]
  - Frequent bowel movements [Unknown]
